FAERS Safety Report 7769880-6 (Version None)
Quarter: 2011Q3

REPORT INFORMATION
  Report Type: 
  Country: None (occurrence: None)
  Receive Date: 20110922
  Receipt Date: 20110913
  Transmission Date: 20111222
  Serious: Yes (Hospitalization)
  Sender: FDA-Public Use
  Company Number: US-ROCHE-803629

PATIENT

DRUGS (1)
  1. XELODA [Suspect]
     Route: 048

REACTIONS (2)
  - HOSPITALISATION [None]
  - DYSPHAGIA [None]
